FAERS Safety Report 10193027 (Version 1)
Quarter: 2014Q2

REPORT INFORMATION
  Report Type: Spontaneous
  Country: ID (occurrence: ID)
  Receive Date: 20140524
  Receipt Date: 20140524
  Transmission Date: 20141212
  Serious: Yes (Death)
  Sender: FDA-Public Use
  Company Number: ID-ROCHE-1404240

PATIENT
  Age: 59 Year
  Sex: Female

DRUGS (2)
  1. ALTEPLASE [Suspect]
     Indication: ACUTE MYOCARDIAL INFARCTION
     Dosage: 15 MG BOLUS IN 50 CC, THEN 0.75 MG/KG
     Route: 042
     Dates: start: 20140514, end: 20140514
  2. ASPILETS [Concomitant]
     Dosage: LOADING DOSE
     Route: 065

REACTIONS (7)
  - Gastrointestinal haemorrhage [Fatal]
  - Haematemesis [Fatal]
  - Convulsion [Fatal]
  - Blood pressure decreased [Fatal]
  - Cold sweat [Fatal]
  - Abdominal pain upper [Fatal]
  - Nausea [Fatal]
